FAERS Safety Report 5062800-7 (Version None)
Quarter: 2006Q3

REPORT INFORMATION
  Report Type: 
  Country: None (occurrence: None)
  Receive Date: 20060725
  Receipt Date: 20060725
  Transmission Date: 20061208
  Serious: Yes (Hospitalization)
  Sender: FDA-Public Use
  Company Number: None

PATIENT
  Sex: Male
  Weight: 110.6777 kg

DRUGS (13)
  1. OXANDRIN [Suspect]
     Indication: CHEMOTHERAPY
     Dosage: 10MG PO BID
     Route: 048
     Dates: start: 20060530, end: 20060613
  2. OXANDRIN [Suspect]
     Indication: WEIGHT DECREASED
     Dosage: 10MG PO BID
     Route: 048
     Dates: start: 20060530, end: 20060613
  3. OXYCONTIN [Concomitant]
  4. PERCOCET [Concomitant]
  5. DILAUDID [Concomitant]
  6. CARBOPLATIN [Concomitant]
  7. ATENOLOL AND CHLORTHALIDONE [Concomitant]
  8. DARVOCET-N 100 [Concomitant]
  9. VICODIN [Concomitant]
  10. GEMZAR [Concomitant]
  11. AVASTIN [Concomitant]
  12. ALOXI [Concomitant]
  13. DECADRON [Concomitant]

REACTIONS (1)
  - RENAL FAILURE ACUTE [None]
